FAERS Safety Report 13780816 (Version 1)
Quarter: 2017Q3

REPORT INFORMATION
  Report Type: Spontaneous
  Country: US (occurrence: US)
  Receive Date: 20170721
  Receipt Date: 20170721
  Transmission Date: 20171127
  Serious: Yes (Other)
  Sender: FDA-Public Use
  Company Number: None

PATIENT
  Age: 69 Year
  Sex: Male
  Weight: 99 kg

DRUGS (8)
  1. LISINOPROL [Concomitant]
     Active Substance: LISINOPRIL
  2. CRESTOR [Concomitant]
     Active Substance: ROSUVASTATIN CALCIUM
  3. CENTRUM SILVER [Concomitant]
     Active Substance: MINERALS\VITAMINS
  4. METOPROLOL. [Concomitant]
     Active Substance: METOPROLOL
  5. PLACIDYL [Concomitant]
     Active Substance: ETHCHLORVYNOL
  6. ELIQUIS [Concomitant]
     Active Substance: APIXABAN
  7. PRAMIPEXOLE. [Concomitant]
     Active Substance: PRAMIPEXOLE
  8. ANORO ELLIPTA [Suspect]
     Active Substance: UMECLIDINIUM BROMIDE\VILANTEROL TRIFENATATE
     Indication: CHRONIC OBSTRUCTIVE PULMONARY DISEASE
     Dosage: ?          QUANTITY:1 SPRAY(S);?
     Route: 055

REACTIONS (2)
  - Loose tooth [None]
  - Tooth loss [None]

NARRATIVE: CASE EVENT DATE: 20170101
